FAERS Safety Report 16662759 (Version 1)
Quarter: 2019Q3

REPORT INFORMATION
  Report Type: Report from Study
  Country: US (occurrence: US)
  Receive Date: 20190802
  Receipt Date: 20190802
  Transmission Date: 20191004
  Serious: No
  Sender: FDA-Public Use
  Company Number: US-EXELIXIS-CABO-19018988

PATIENT
  Age: 86 Year
  Sex: Male

DRUGS (2)
  1. CABOMETYX [Suspect]
     Active Substance: CABOZANTINIB S-MALATE
     Dosage: 60 MG, QD (PM WITHOUT FOOD)
     Dates: start: 20190228
  2. CABOMETYX [Suspect]
     Active Substance: CABOZANTINIB S-MALATE
     Indication: RENAL CANCER
     Dosage: 60 MG, QD (PM WITHOUT FOOD)
     Dates: start: 20190205, end: 20190221

REACTIONS (9)
  - Scratch [Unknown]
  - Asthenia [Unknown]
  - Vision blurred [Unknown]
  - Urinary incontinence [Unknown]
  - Dyspnoea [Unknown]
  - Platelet count decreased [Unknown]
  - Fatigue [Unknown]
  - Blood potassium decreased [Unknown]
  - Blood pressure fluctuation [Unknown]

NARRATIVE: CASE EVENT DATE: 201902
